FAERS Safety Report 25840050 (Version 1)
Quarter: 2025Q3

REPORT INFORMATION
  Report Type: Spontaneous
  Country: IN (occurrence: IN)
  Receive Date: 20250924
  Receipt Date: 20250924
  Transmission Date: 20251020
  Serious: Yes (Other)
  Sender: CIPLA
  Company Number: IN-CIPLA LTD.-2025IN11629

PATIENT

DRUGS (3)
  1. SERTRALINE [Suspect]
     Active Substance: SERTRALINE HYDROCHLORIDE
     Indication: Affective disorder
     Route: 065
  2. SERTRALINE [Suspect]
     Active Substance: SERTRALINE HYDROCHLORIDE
     Route: 065
  3. PROPRANOLOL [Concomitant]
     Active Substance: PROPRANOLOL HYDROCHLORIDE
     Indication: Emotional distress
     Route: 065

REACTIONS (13)
  - Chest discomfort [Recovering/Resolving]
  - Fear of death [Recovering/Resolving]
  - Emotional distress [Recovering/Resolving]
  - Dyspnoea [Recovering/Resolving]
  - Panic reaction [Recovering/Resolving]
  - Paraesthesia [Recovering/Resolving]
  - Crying [Recovering/Resolving]
  - Depersonalisation/derealisation disorder [Recovering/Resolving]
  - Dizziness [Recovering/Resolving]
  - Hyperhidrosis [Recovering/Resolving]
  - Palpitations [Recovering/Resolving]
  - Drug withdrawal syndrome [Recovering/Resolving]
  - Exposure during pregnancy [Unknown]
